FAERS Safety Report 12453953 (Version 1)
Quarter: 2016Q2

REPORT INFORMATION
  Report Type: Spontaneous
  Country: DE (occurrence: DE)
  Receive Date: 20160609
  Receipt Date: 20160609
  Transmission Date: 20160815
  Serious: Yes (Hospitalization)
  Sender: FDA-Public Use
  Company Number: DE-ROCHE-1769534

PATIENT
  Age: 65 Year
  Sex: Male

DRUGS (50)
  1. SEROQUEL [Suspect]
     Active Substance: QUETIAPINE FUMARATE
     Dosage: DOSE: 1000 - 400 MG
     Route: 048
     Dates: start: 20140322, end: 20140424
  2. QUILONUM RETARD [Suspect]
     Active Substance: LITHIUM CARBONATE
     Dosage: DOSE INCREASED
     Route: 048
     Dates: start: 20140515, end: 20140605
  3. TILIDIN COMP [Concomitant]
     Active Substance: NALOXONE HYDROCHLORIDE\TILIDINE HYDROCHLORIDE
     Route: 048
     Dates: start: 20140526
  4. RAMIPRIL. [Concomitant]
     Active Substance: RAMIPRIL
     Route: 048
     Dates: start: 2010
  5. DIAZEPAM. [Suspect]
     Active Substance: DIAZEPAM
     Indication: PRODUCT USED FOR UNKNOWN INDICATION
     Route: 048
     Dates: start: 20140601, end: 20140604
  6. DIAZEPAM. [Suspect]
     Active Substance: DIAZEPAM
     Route: 048
     Dates: start: 20140601, end: 20140604
  7. SEROQUEL [Suspect]
     Active Substance: QUETIAPINE FUMARATE
     Dosage: DOSE INCREASED
     Route: 048
     Dates: start: 20140515, end: 20140525
  8. SEROQUEL [Suspect]
     Active Substance: QUETIAPINE FUMARATE
     Dosage: DOSE INCREASED
     Route: 048
     Dates: start: 20140526, end: 20140611
  9. ZUCLOPENTHIXOL [Suspect]
     Active Substance: ZUCLOPENTHIXOL
     Route: 030
     Dates: start: 20140325
  10. FLUNITRAZEPAM [Suspect]
     Active Substance: FLUNITRAZEPAM
     Dosage: DOSE REDUCED
     Route: 048
     Dates: start: 20140531, end: 20140611
  11. HALOPERIDOL. [Suspect]
     Active Substance: HALOPERIDOL
     Dosage: DOSE REDUCED
     Route: 048
     Dates: start: 20140403, end: 20140404
  12. IBUPROFEN. [Concomitant]
     Active Substance: IBUPROFEN
     Route: 048
     Dates: start: 20140607
  13. ASPIRIN. [Concomitant]
     Active Substance: ASPIRIN
     Route: 048
  14. DIAZEPAM. [Suspect]
     Active Substance: DIAZEPAM
     Route: 048
     Dates: start: 20140527
  15. SEROQUEL [Suspect]
     Active Substance: QUETIAPINE FUMARATE
     Dosage: DOSE REDUCED
     Route: 048
     Dates: start: 20140310, end: 20140319
  16. QUILONUM RETARD [Suspect]
     Active Substance: LITHIUM CARBONATE
     Indication: PRODUCT USED FOR UNKNOWN INDICATION
     Dosage: DOSE: 400 - 900 MG, FOR YEARS
     Route: 048
     Dates: end: 20140327
  17. QUILONUM RETARD [Suspect]
     Active Substance: LITHIUM CARBONATE
     Route: 048
     Dates: start: 20140328, end: 20140424
  18. QUILONUM RETARD [Suspect]
     Active Substance: LITHIUM CARBONATE
     Dosage: DOSE REDUCED
     Route: 048
     Dates: start: 20140310, end: 20140321
  19. HALOPERIDOL. [Suspect]
     Active Substance: HALOPERIDOL
     Dosage: DOSE REDUCED
     Route: 048
     Dates: start: 20140405, end: 20140406
  20. EUTHYROX [Concomitant]
     Active Substance: LEVOTHYROXINE SODIUM
     Route: 048
  21. SEROQUEL [Suspect]
     Active Substance: QUETIAPINE FUMARATE
     Route: 048
     Dates: start: 20140425, end: 20140514
  22. QUILONUM RETARD [Suspect]
     Active Substance: LITHIUM CARBONATE
     Dosage: DOSE REDUCED
     Route: 048
     Dates: start: 20140425, end: 20140514
  23. QUILONUM RETARD [Suspect]
     Active Substance: LITHIUM CARBONATE
     Dosage: DOSE REDUCED
     Route: 048
     Dates: start: 20140606
  24. ZUCLOPENTHIXOL [Suspect]
     Active Substance: ZUCLOPENTHIXOL
     Indication: PRODUCT USED FOR UNKNOWN INDICATION
     Route: 030
     Dates: start: 20140527
  25. FLUNITRAZEPAM [Suspect]
     Active Substance: FLUNITRAZEPAM
     Route: 048
     Dates: start: 20140321, end: 20140323
  26. TAMSULOSIN [Concomitant]
     Active Substance: TAMSULOSIN
     Route: 048
     Dates: start: 2012
  27. DIAZEPAM. [Suspect]
     Active Substance: DIAZEPAM
     Route: 048
     Dates: start: 20140531
  28. SEROQUEL [Suspect]
     Active Substance: QUETIAPINE FUMARATE
     Indication: PRODUCT USED FOR UNKNOWN INDICATION
     Dosage: 400 - 1200 MG
     Route: 048
     Dates: start: 2012, end: 2014
  29. FLUPHENAZINE [Suspect]
     Active Substance: FLUPHENAZINE
     Route: 030
     Dates: start: 20140527
  30. FLUPHENAZINE [Suspect]
     Active Substance: FLUPHENAZINE
     Dosage: DOSE INCREASED
     Route: 030
     Dates: start: 20140618
  31. FLUNITRAZEPAM [Suspect]
     Active Substance: FLUNITRAZEPAM
     Dosage: DOSE INCREASED
     Route: 048
     Dates: start: 20140324, end: 20140405
  32. SPIRONOLACTON [Concomitant]
     Active Substance: SPIRONOLACTONE
     Route: 048
     Dates: start: 2012, end: 20140410
  33. IBUPROFEN. [Concomitant]
     Active Substance: IBUPROFEN
     Route: 048
     Dates: start: 20140528, end: 20140606
  34. SEROQUEL [Suspect]
     Active Substance: QUETIAPINE FUMARATE
     Dosage: DOSE INCREASED
     Route: 048
     Dates: start: 20140320
  35. HALOPERIDOL. [Suspect]
     Active Substance: HALOPERIDOL
     Indication: PRODUCT USED FOR UNKNOWN INDICATION
     Route: 048
     Dates: start: 20140324, end: 20140402
  36. METFORMIN [Concomitant]
     Active Substance: METFORMIN HYDROCHLORIDE
     Route: 048
     Dates: start: 2012
  37. TORASEMIDE [Concomitant]
     Active Substance: TORSEMIDE
     Route: 048
     Dates: start: 2010
  38. DIAZEPAM. [Suspect]
     Active Substance: DIAZEPAM
     Route: 048
     Dates: start: 20140529, end: 20140530
  39. DIAZEPAM. [Suspect]
     Active Substance: DIAZEPAM
     Route: 048
     Dates: start: 20140605, end: 20140606
  40. DIAZEPAM. [Suspect]
     Active Substance: DIAZEPAM
     Route: 048
     Dates: start: 20140607, end: 20140609
  41. SEROQUEL [Suspect]
     Active Substance: QUETIAPINE FUMARATE
     Dosage: DOSE INCREASED
     Route: 048
     Dates: start: 20140321
  42. QUILONUM RETARD [Suspect]
     Active Substance: LITHIUM CARBONATE
     Dosage: DOSE INCREASED
     Route: 048
     Dates: start: 20140322, end: 20140327
  43. FLUNITRAZEPAM [Suspect]
     Active Substance: FLUNITRAZEPAM
     Indication: PRODUCT USED FOR UNKNOWN INDICATION
     Route: 048
     Dates: start: 20140529, end: 20140530
  44. SPIRONOLACTON [Concomitant]
     Active Substance: SPIRONOLACTONE
     Route: 048
     Dates: start: 20140411
  45. IBUPROFEN. [Concomitant]
     Active Substance: IBUPROFEN
     Route: 048
     Dates: start: 20140526, end: 20140527
  46. DIAZEPAM. [Suspect]
     Active Substance: DIAZEPAM
     Dosage: DOSE REDUCED
     Route: 048
     Dates: start: 20140528
  47. DIAZEPAM. [Suspect]
     Active Substance: DIAZEPAM
     Route: 048
     Dates: start: 20140610, end: 20140621
  48. SEROQUEL [Suspect]
     Active Substance: QUETIAPINE FUMARATE
     Dosage: DOSE INCREASED
     Route: 048
     Dates: start: 20140612
  49. FLUPHENAZINE [Suspect]
     Active Substance: FLUPHENAZINE
     Indication: PRODUCT USED FOR UNKNOWN INDICATION
     Route: 030
     Dates: start: 20141017
  50. FLUPHENAZINE [Suspect]
     Active Substance: FLUPHENAZINE
     Dosage: DOSE REDUCED
     Route: 030
     Dates: start: 20130317

REACTIONS (4)
  - Speech disorder [Unknown]
  - Femur fracture [Recovered/Resolved]
  - Bronchitis [Unknown]
  - Salivary hypersecretion [Recovering/Resolving]

NARRATIVE: CASE EVENT DATE: 2013
